FAERS Safety Report 21577485 (Version 1)
Quarter: 2022Q4

REPORT INFORMATION
  Report Type: Spontaneous
  Country: BR (occurrence: None)
  Receive Date: 20221110
  Receipt Date: 20221110
  Transmission Date: 20230112
  Serious: Yes (Other)
  Sender: FDA-Public Use
  Company Number: BR-ROCHE-3216348

PATIENT
  Age: 76 Year
  Sex: Male
  Weight: 69 kg

DRUGS (7)
  1. RIVOTRIL [Suspect]
     Active Substance: CLONAZEPAM
     Indication: Dizziness
     Route: 048
     Dates: start: 2018
  2. RIVOTRIL [Suspect]
     Active Substance: CLONAZEPAM
     Indication: Nervousness
  3. RIVOTRIL [Suspect]
     Active Substance: CLONAZEPAM
     Indication: Headache
  4. AMLODIPINE BESYLATE [Concomitant]
     Active Substance: AMLODIPINE BESYLATE
     Route: 048
  5. BISOPROLOL FUMARATE [Concomitant]
     Active Substance: BISOPROLOL FUMARATE
     Indication: Arrhythmia
     Route: 048
  6. ZART H [Concomitant]
     Indication: Hypertension
  7. XARELTO [Concomitant]
     Active Substance: RIVAROXABAN
     Indication: Anticoagulant therapy

REACTIONS (3)
  - Diabetes mellitus [Not Recovered/Not Resolved]
  - Blood pressure decreased [Unknown]
  - Off label use [Not Recovered/Not Resolved]

NARRATIVE: CASE EVENT DATE: 20210101
